FAERS Safety Report 8507312 (Version 2)
Quarter: 2012Q4

REPORT INFORMATION
  Report Type: 
  Country: US (occurrence: US)
  Receive Date: 20120412
  Receipt Date: 20121108
  Transmission Date: 20130627
  Serious: No
  Sender: FDA-Public Use
  Company Number: US-ASTRAZENECA-2011SE52262

PATIENT
  Age: 75 Year
  Sex: Female

DRUGS (7)
  1. NEXIUM [Suspect]
     Route: 048
  2. NEXIUM [Suspect]
     Dosage: SOME TIMES TAKES TWO CAPSULES INSTEAD OF ONE CAPSULE
     Route: 048
  3. LISINOPRIL [Suspect]
     Route: 048
  4. LISINOPRIL HCTZ [Suspect]
     Route: 048
  5. ATENOLOL [Concomitant]
  6. LIPITOR [Concomitant]
  7. XANAX [Concomitant]

REACTIONS (10)
  - Musculoskeletal disorder [Unknown]
  - Contusion [Unknown]
  - Limb discomfort [Unknown]
  - Renal cyst [Unknown]
  - Thyroid disorder [Unknown]
  - Ulcer [Unknown]
  - Dehydration [Unknown]
  - Fall [Unknown]
  - Gastrointestinal disorder [Unknown]
  - Arthropathy [Unknown]
